FAERS Safety Report 5081857-0 (Version None)
Quarter: 2006Q3

REPORT INFORMATION
  Report Type: 
  Country: None (occurrence: None)
  Receive Date: 20060816
  Receipt Date: 20060808
  Transmission Date: 20061208
  Serious: Yes (Other)
  Sender: FDA-Public Use
  Company Number: US-JNJFOC-20060307794

PATIENT
  Sex: Male
  Weight: 110.22 kg

DRUGS (2)
  1. REMICADE [Suspect]
     Route: 042
  2. REMICADE [Suspect]
     Indication: CROHN'S DISEASE
     Dosage: 5 INFUSIONS
     Route: 042

REACTIONS (2)
  - ARTHRALGIA [None]
  - MONONEUROPATHY MULTIPLEX [None]
